FAERS Safety Report 25193471 (Version 2)
Quarter: 2025Q3

REPORT INFORMATION
  Report Type: Spontaneous
  Country: KR (occurrence: KR)
  Receive Date: 20250414
  Receipt Date: 20250802
  Transmission Date: 20251021
  Serious: Yes (Other)
  Sender: ALEXION PHARMACEUTICALS
  Company Number: KR-AstraZeneca-CH-00844237A

PATIENT
  Age: 71 Year
  Sex: Female

DRUGS (3)
  1. TAGRISSO [Suspect]
     Active Substance: OSIMERTINIB
     Route: 065
  2. GEFITINIB [Concomitant]
     Active Substance: GEFITINIB
     Route: 065
  3. CAPMATINIB [Concomitant]
     Active Substance: CAPMATINIB
     Route: 065

REACTIONS (2)
  - Adenocarcinoma [Unknown]
  - Metastases to bone [Unknown]
